FAERS Safety Report 9525587 (Version 1)
Quarter: 2013Q1

REPORT INFORMATION
  Report Type: Spontaneous
  Country: US (occurrence: None)
  Receive Date: 20130314
  Receipt Date: 20130314
  Transmission Date: 20140127
  Serious: No
  Sender: FDA-Public Use
  Company Number: 1301USA013637

PATIENT
  Age: 57 Year
  Sex: Male

DRUGS (10)
  1. VICTRELIS (BOCEPREVIR) CAPSULE, 200MG [Suspect]
     Dosage: 4 DF(800 MG), TID EVERY 7-9 HOURS
     Route: 048
  2. PEGINTRON (PEGINTERFERON ALFA-2B) POWDER FOR INJECTION [Suspect]
  3. RIBAPAK (RIBAVIRIN) [Suspect]
  4. VIAGRA (SILDENAFIL CITRATE) TABLET [Concomitant]
  5. IMITREX (SUMATRIPTAN) (SUMATRIPTAN) TABLET [Concomitant]
  6. OMEGA-3 MARINE TRIGLYCERIDES (OMEGA-3 MARINE TRIGLYCERIDES) CAPSULE [Concomitant]
  7. VITAMIN D (UNSPECIFIED) (VITAMIN D (UNSPECIFIED)) CAPSULE, 1000 IU [Concomitant]
  8. VITAMINS (UNSPECIFIED) (VITAMINS (UNSPECIFIED)) LIQUID [Concomitant]
  9. GLUCOSAMINE (GLUCOSAMINE) CAPSULE, 1000 MG [Concomitant]
  10. TURMERIC (TURMERIC) CAPSULE, 500 MG [Concomitant]

REACTIONS (1)
  - Memory impairment [None]
